FAERS Safety Report 8544526-8 (Version None)
Quarter: 2012Q3

REPORT INFORMATION
  Report Type: 
  Country: None (occurrence: None)
  Receive Date: 20120717
  Receipt Date: 20120705
  Transmission Date: 20120928
  Serious: Yes (Hospitalization, Other)
  Sender: FDA-Public Use
  Company Number: AUR-APL-2012-02589

PATIENT
  Age: 78 Year
  Sex: Male
  Weight: 99.32 kg

DRUGS (5)
  1. METOPROLOL TARTRATE [Suspect]
     Indication: HYPERTENSION
     Dosage: 25 MG (12.5 MG, 2 IN 1 D)
  2. FENTANYL [Concomitant]
  3. SUNITINIB MALATE [Suspect]
     Indication: BONE NEOPLASM MALIGNANT
     Dates: start: 20120529, end: 20120602
  4. SUNITINIB MALATE [Suspect]
     Indication: PROSTATE CANCER
     Dates: start: 20120529, end: 20120602
  5. SUNITINIB MALATE [Suspect]
     Indication: RENAL CANCER
     Dates: start: 20120529, end: 20120602

REACTIONS (2)
  - HYPOTENSION [None]
  - GRAND MAL CONVULSION [None]
